FAERS Safety Report 9687276 (Version 1)
Quarter: 2013Q4

REPORT INFORMATION
  Report Type: Report from Study
  Country: US (occurrence: US)
  Receive Date: 20131114
  Receipt Date: 20131114
  Transmission Date: 20140711
  Serious: Yes (Other)
  Sender: FDA-Public Use
  Company Number: US-ROCHE-1302810

PATIENT
  Sex: 0

DRUGS (3)
  1. MYCOPHENOLATE MOFETIL [Suspect]
     Indication: PROPHYLAXIS AGAINST TRANSPLANT REJECTION
     Route: 048
  2. METHYLPREDNISONE (UNK INGREDIENTS) [Concomitant]
     Route: 065
  3. PREDNISONE [Concomitant]
     Route: 048

REACTIONS (1)
  - Haemolytic uraemic syndrome [Unknown]
